FAERS Safety Report 14196295 (Version 4)
Quarter: 2018Q2

REPORT INFORMATION
  Report Type: Spontaneous
  Country: US (occurrence: US)
  Receive Date: 20171116
  Receipt Date: 20180601
  Transmission Date: 20180711
  Serious: Yes (Other)
  Sender: FDA-Public Use
  Company Number: US-BAYER-2017-220294

PATIENT
  Age: 36 Year
  Sex: Female
  Weight: 127.89 kg

DRUGS (1)
  1. MIRENA [Suspect]
     Active Substance: LEVONORGESTREL
     Indication: CONTRACEPTION
     Dosage: 20 MCG/24HR, CONT
     Route: 015
     Dates: start: 201408

REACTIONS (7)
  - Uterine leiomyoma [None]
  - Device difficult to use [None]
  - Medical device entrapment [None]
  - Ovarian cyst [None]
  - Genital haemorrhage [None]
  - Uterine perforation [None]
  - Pelvic pain [None]

NARRATIVE: CASE EVENT DATE: 201601
